FAERS Safety Report 5228298-0 (Version None)
Quarter: 2007Q1

REPORT INFORMATION
  Report Type: 
  Country: None (occurrence: None)
  Receive Date: 20070131
  Receipt Date: 20070131
  Transmission Date: 20070707
  Serious: No
  Sender: FDA-Public Use
  Company Number: None

PATIENT
  Sex: Male
  Weight: 79.3795 kg

DRUGS (1)
  1. DOXAZOSIN MESYLATE [Suspect]
     Indication: URINE FLOW DECREASED
     Dosage: 1 PILL AT BEDTIME  ONCE A DAY  PO
     Route: 048
     Dates: start: 20060830, end: 20070130

REACTIONS (3)
  - MEDICATION RESIDUE [None]
  - PHARMACEUTICAL PRODUCT COMPLAINT [None]
  - TREATMENT NONCOMPLIANCE [None]
